FAERS Safety Report 4455550-9 (Version None)
Quarter: 2004Q3

REPORT INFORMATION
  Report Type: 
  Country: None (occurrence: None)
  Receive Date: 20040922
  Receipt Date: 20040916
  Transmission Date: 20050211
  Serious: Yes (Other)
  Sender: FDA-Public Use
  Company Number: PHBS2004TW12342

PATIENT
  Age: 72 Year
  Sex: Male

DRUGS (1)
  1. LAMISIL [Suspect]
     Route: 048
     Dates: start: 20040811, end: 20040904

REACTIONS (10)
  - ARTHRALGIA [None]
  - ASPIRATION JOINT [None]
  - BLOOD UREA INCREASED [None]
  - CONCOMITANT DISEASE AGGRAVATED [None]
  - JOINT EFFUSION [None]
  - JOINT STIFFNESS [None]
  - JOINT SWELLING [None]
  - MICROALBUMINURIA [None]
  - PARAESTHESIA [None]
  - PYREXIA [None]
